FAERS Safety Report 21503711 (Version 4)
Quarter: 2025Q1

REPORT INFORMATION
  Report Type: Spontaneous
  Country: US (occurrence: US)
  Receive Date: 20221025
  Receipt Date: 20250117
  Transmission Date: 20250409
  Serious: No
  Sender: PFIZER
  Company Number: US-PFIZER INC-202201196532

PATIENT
  Age: 5 Year
  Sex: Male
  Weight: 32.66 kg

DRUGS (7)
  1. GENOTROPIN [Suspect]
     Active Substance: SOMATROPIN
     Indication: Adrenal insufficiency
     Dosage: 1 MG, DAILY (7:00 EVERY NIGHT, 1MG, SUB Q)
     Route: 058
  2. DESMOPRESSIN [Concomitant]
     Active Substance: DESMOPRESSIN
     Indication: Diabetes insipidus
     Dosage: 0.5 MG, 2X/DAY (0.5MG TABLET EVERY 12 HOURS)
  3. LEVOTHYROXINE [Concomitant]
     Active Substance: LEVOTHYROXINE
     Indication: Thyroid disorder
     Dosage: 75 UG, 1X/DAY (75 UG TABLET ONCE IN THE MORNING AT 7)
  4. HYDROCORTISONE ACETATE [Concomitant]
     Active Substance: HYDROCORTISONE ACETATE
     Indication: Adrenal insufficiency
     Dosage: 5 MG, DAILY (5MG PILL IN THE MORNING)
  5. HYDROCORTISONE ACETATE [Concomitant]
     Active Substance: HYDROCORTISONE ACETATE
     Dosage: 2.5 MG, DAILY (2.5MG PILL AT NIGHT)
  6. ZYRTEC [Concomitant]
     Active Substance: CETIRIZINE HYDROCHLORIDE
     Indication: Hypersensitivity
     Dosage: 10 MG, DAILY (10MG TABET IN THE MORNING)
  7. VITAMIN C [Concomitant]
     Active Substance: ASCORBIC ACID
     Indication: Supplementation therapy
     Dosage: 1000 MG, DAILY (1000MG TABLET IN THE MORNING)

REACTIONS (4)
  - Wrong technique in product usage process [Unknown]
  - Poor quality device used [Unknown]
  - Device issue [Unknown]
  - Device information output issue [Unknown]

NARRATIVE: CASE EVENT DATE: 20220927
